FAERS Safety Report 12365151 (Version 1)
Quarter: 2016Q2

REPORT INFORMATION
  Report Type: Spontaneous
  Country: US (occurrence: None)
  Receive Date: 20160512
  Receipt Date: 20160512
  Transmission Date: 20160815
  Serious: Yes (Other)
  Sender: FDA-Public Use
  Company Number: None

PATIENT
  Age: 66 Year
  Sex: Female
  Weight: 54.43 kg

DRUGS (4)
  1. ALEVE [Concomitant]
     Active Substance: NAPROXEN SODIUM
  2. ADVIL [Concomitant]
     Active Substance: IBUPROFEN
  3. LEVOFLOXACIN AUROBINDO [Suspect]
     Active Substance: LEVOFLOXACIN
     Indication: INFECTION PROPHYLAXIS
     Route: 048
     Dates: start: 20160430, end: 20160501
  4. BENADRYL [Concomitant]
     Active Substance: DIPHENHYDRAMINE HYDROCHLORIDE

REACTIONS (8)
  - Pain in extremity [None]
  - Arthralgia [None]
  - Muscular weakness [None]
  - Swelling face [None]
  - Urticaria [None]
  - Peripheral swelling [None]
  - Pharyngeal oedema [None]
  - Pruritus [None]

NARRATIVE: CASE EVENT DATE: 20160501
